FAERS Safety Report 22064324 (Version 3)
Quarter: 2023Q1

REPORT INFORMATION
  Report Type: Report from Study
  Country: US (occurrence: US)
  Receive Date: 20230306
  Receipt Date: 20230313
  Transmission Date: 20230417
  Serious: Yes (Life-Threatening, Hospitalization, Other)
  Sender: FDA-Public Use
  Company Number: US-002147023-NVSC2022US303555

PATIENT
  Sex: Male

DRUGS (2)
  1. ENOXAPARIN SODIUM [Suspect]
     Active Substance: ENOXAPARIN SODIUM
     Indication: General physical condition abnormal
     Dosage: 150 MG
     Route: 065
  2. ENOXAPARIN SODIUM [Suspect]
     Active Substance: ENOXAPARIN SODIUM
     Indication: Device malfunction

REACTIONS (5)
  - Device malfunction [Unknown]
  - Thrombosis [Unknown]
  - Product temperature excursion issue [Unknown]
  - Needle issue [Unknown]
  - Product storage error [Unknown]
